FAERS Safety Report 19829280 (Version 1)
Quarter: 2021Q3

REPORT INFORMATION
  Report Type: Spontaneous
  Country: IT (occurrence: IT)
  Receive Date: 20210914
  Receipt Date: 20210914
  Transmission Date: 20211014
  Serious: Yes (Life-Threatening, Hospitalization, Other)
  Sender: FDA-Public Use
  Company Number: IT-MYLANLABS-2021M1061782

PATIENT
  Age: 70 Year
  Sex: Female

DRUGS (2)
  1. DOXORUBICIN [Suspect]
     Active Substance: DOXORUBICIN
     Indication: PERITONEAL MESOTHELIOMA MALIGNANT
     Dosage: 60 MILLIGRAM
  2. CISPLATIN. [Suspect]
     Active Substance: CISPLATIN
     Indication: PERITONEAL MESOTHELIOMA MALIGNANT
     Dosage: 160 MILLIGRAM

REACTIONS (2)
  - Bronchial fistula [Recovered/Resolved]
  - Colonic fistula [Recovered/Resolved]
